FAERS Safety Report 12073024 (Version 1)
Quarter: 2016Q1

REPORT INFORMATION
  Report Type: Spontaneous
  Country: CA (occurrence: CA)
  Receive Date: 20160212
  Receipt Date: 20160212
  Transmission Date: 20160526
  Serious: Yes (Other)
  Sender: FDA-Public Use
  Company Number: CA-PFIZER INC-2016075453

PATIENT
  Age: 16 Year
  Sex: Male
  Weight: 73 kg

DRUGS (2)
  1. ZOLOFT [Suspect]
     Active Substance: SERTRALINE HYDROCHLORIDE
     Indication: ANXIETY
     Dosage: 50 MG, 1X/DAY
     Route: 048
  2. DEXEDRINE [Concomitant]
     Active Substance: DEXTROAMPHETAMINE SULFATE
     Dosage: UNK

REACTIONS (7)
  - Condition aggravated [Recovered/Resolved]
  - Abnormal behaviour [Recovered/Resolved]
  - Agitation [Recovered/Resolved]
  - Hypersomnia [Recovered/Resolved]
  - Lethargy [Recovered/Resolved]
  - Suicidal ideation [Recovered/Resolved]
  - Aggression [Recovered/Resolved]
